FAERS Safety Report 23243025 (Version 1)
Quarter: 2023Q4

REPORT INFORMATION
  Report Type: Report from Study
  Country: US (occurrence: US)
  Receive Date: 20231130
  Receipt Date: 20231130
  Transmission Date: 20240109
  Serious: Yes (Death)
  Sender: FDA-Public Use
  Company Number: US-ABBVIE-5518378

PATIENT
  Age: 81 Year
  Sex: Male
  Weight: 136.07 kg

DRUGS (1)
  1. CREON [Suspect]
     Active Substance: PANCRELIPASE AMYLASE\PANCRELIPASE LIPASE\PANCRELIPASE PROTEASE
     Indication: Product used for unknown indication
     Dosage: STRENGTH: 36000 IU (INTERNATIONAL UNIT)?START DATE TEXT: 2022 OR 2023?2 CAPSULES WITH EACH MEAL
     Route: 048
     Dates: start: 2022, end: 20231104

REACTIONS (2)
  - Acute hepatic failure [Fatal]
  - Weight increased [Not Recovered/Not Resolved]

NARRATIVE: CASE EVENT DATE: 20231001
